FAERS Safety Report 8577642-5 (Version None)
Quarter: 2012Q3

REPORT INFORMATION
  Report Type: 
  Country: None (occurrence: None)
  Receive Date: 20120807
  Receipt Date: 20120802
  Transmission Date: 20120928
  Serious: Yes (Death)
  Sender: FDA-Public Use
  Company Number: US-GILEAD-2012-0059007

PATIENT
  Sex: Male

DRUGS (13)
  1. LETAIRIS [Suspect]
     Indication: HEPATIC FUNCTION ABNORMAL
  2. ENOXAPARIN [Concomitant]
  3. LETAIRIS [Suspect]
     Indication: PULMONARY HYPERTENSION
     Dosage: 5 MG, UNK
     Route: 048
     Dates: start: 20120402, end: 20120722
  4. FLUTICASONE FUROATE [Concomitant]
  5. SILDENAFIL [Concomitant]
  6. AMLODIPINE [Concomitant]
  7. GABAPENTIN [Concomitant]
  8. FUROSEMIDE [Concomitant]
  9. LETAIRIS [Suspect]
     Indication: SICKLE CELL ANAEMIA
  10. PENICILLIN V POTASSIUM [Concomitant]
  11. OXYGEN [Concomitant]
  12. REMODULIN [Concomitant]
  13. DIGOXIN [Concomitant]

REACTIONS (1)
  - CARDIAC FAILURE CONGESTIVE [None]
